FAERS Safety Report 6013638-5 (Version None)
Quarter: 2008Q4

REPORT INFORMATION
  Report Type: 
  Country: None (occurrence: None)
  Receive Date: 20081219
  Receipt Date: 20081215
  Transmission Date: 20090506
  Serious: Yes (Other)
  Sender: FDA-Public Use
  Company Number: GB-ROCHE-603255

PATIENT
  Sex: Male
  Weight: 85.7 kg

DRUGS (11)
  1. ORLISTAT [Suspect]
     Indication: OBESITY
     Route: 048
     Dates: start: 20080422
  2. FUROSEMIDE [Concomitant]
     Dosage: INDICATION REPORTED AS WATER.
     Route: 048
  3. ASPIRIN [Concomitant]
     Route: 048
  4. AMLODIPINE [Concomitant]
     Route: 048
  5. SPIRONOLACTONE [Concomitant]
     Dosage: DRUG REPORTED AS SPIRONELATONE.
     Route: 048
  6. SIMVASTATIN [Concomitant]
     Route: 048
  7. IRBESARTAN [Concomitant]
     Indication: BLOOD PRESSURE
     Route: 048
  8. OMACOR [Concomitant]
     Route: 048
  9. LANSOPRAZOLE [Concomitant]
     Dosage: DRUG REPORTED AS LAMOSPRAZOLE.
     Route: 048
  10. NOVAMIX [Concomitant]
     Dosage: 44 UNITS AT BREAKFAST AND 34 UNITS AT TEA TIME.
  11. ACETAMINOPHEN W/ CODEINE [Concomitant]
     Indication: ANALGESIC THERAPY
     Route: 048
     Dates: end: 20081201

REACTIONS (1)
  - HERNIA [None]
